FAERS Safety Report 4582359-8 (Version None)
Quarter: 2005Q1

REPORT INFORMATION
  Report Type: 
  Country: None (occurrence: None)
  Receive Date: 20050119
  Receipt Date: 20040203
  Transmission Date: 20050727
  Serious: Yes (Other)
  Sender: FDA-Public Use
  Company Number: US-JNJFOC-20031000137

PATIENT
  Age: 61 Year
  Sex: Female
  Weight: 177.6 kg

DRUGS (8)
  1. DOXIL [Suspect]
     Indication: OVARIAN CANCER
     Dosage: 85 MG, INTRAVENOUS
     Route: 042
     Dates: start: 20030827, end: 20030917
  2. DOXIL [Suspect]
     Indication: OVARIAN CANCER
     Dosage: 85 MG, INTRAVENOUS
     Route: 042
     Dates: start: 20031201
  3. MACROBID [Concomitant]
  4. VITAMIN E [Concomitant]
  5. VITAMIN C (ASCORBIC ACID) [Concomitant]
  6. GLUCOSAMINE CHONDROITIN (GLUCOSAMINE W/CHONDROITIN SULFATES) [Concomitant]
  7. CENTRUM SILVER (CENTRUM SILVER) [Concomitant]
  8. LOVENOX [Concomitant]

REACTIONS (1)
  - DRUG ERUPTION [None]
